FAERS Safety Report 7709927-6 (Version None)
Quarter: 2011Q3

REPORT INFORMATION
  Report Type: 
  Country: None (occurrence: None)
  Receive Date: 20110825
  Receipt Date: 20110819
  Transmission Date: 20111222
  Serious: Yes (Other)
  Sender: FDA-Public Use
  Company Number: FR-B.I. PHARMACEUTICALS,INC./RIDGEFIELD-2011-BP-16103YA

PATIENT
  Sex: Male

DRUGS (5)
  1. TAMSULOSIN HCL [Suspect]
     Indication: BENIGN PROSTATIC HYPERPLASIA
     Route: 048
     Dates: start: 20100101, end: 20110526
  2. ATORVASTATIN CALCIUM [Concomitant]
  3. PIROXICAM [Concomitant]
  4. OLMESARTAN MEDOXOMIL [Concomitant]
  5. IXPRIM (PARACETAMOL, TRAMADOL HYDROCHLORIDE) [Concomitant]

REACTIONS (6)
  - COORDINATION ABNORMAL [None]
  - ORTHOSTATIC HYPOTENSION [None]
  - PARTIAL SEIZURES [None]
  - ALTERED STATE OF CONSCIOUSNESS [None]
  - DIZZINESS [None]
  - MALAISE [None]
